FAERS Safety Report 9640155 (Version 3)
Quarter: 2013Q4

REPORT INFORMATION
  Report Type: Spontaneous
  Country: US (occurrence: US)
  Receive Date: 20131023
  Receipt Date: 20131112
  Transmission Date: 20140711
  Serious: No
  Sender: FDA-Public Use
  Company Number: US-PFIZER INC-2013297909

PATIENT
  Age: 54 Year
  Sex: Female

DRUGS (8)
  1. NORVASC [Suspect]
     Dosage: UNK
  2. LISINOPRIL [Suspect]
     Dosage: UNK
  3. METFORMIN HCL [Suspect]
     Dosage: UNK
  4. CODEINE [Suspect]
     Dosage: UNK
  5. NAPROSYN [Suspect]
     Dosage: UNK
  6. SULFACETAMIDE SODIUM [Suspect]
     Dosage: UNK
  7. SULFUR [Suspect]
     Dosage: UNK
  8. ULTRAM [Suspect]
     Dosage: UNK

REACTIONS (1)
  - Drug hypersensitivity [Unknown]
